FAERS Safety Report 16274073 (Version 1)
Quarter: 2019Q2

REPORT INFORMATION
  Report Type: Spontaneous
  Country: MX (occurrence: MX)
  Receive Date: 20190506
  Receipt Date: 20190506
  Transmission Date: 20190711
  Serious: Yes (Hospitalization)
  Sender: FDA-Public Use
  Company Number: MX-HORIZON-ACT-0119-2019

PATIENT
  Age: 14 Year
  Sex: Male
  Weight: 49 kg

DRUGS (2)
  1. TRIMETROPIUM/SULFAMETHOXAZOLE [Concomitant]
     Indication: CHRONIC GRANULOMATOUS DISEASE
     Dosage: 400/80 MILLIGRAM DAILY
     Route: 048
     Dates: start: 20190116
  2. IMUKIN [Suspect]
     Active Substance: INTERFERON GAMMA
     Indication: CHRONIC GRANULOMATOUS DISEASE
     Route: 058
     Dates: start: 20190116

REACTIONS (2)
  - Bronchopulmonary aspergillosis [Recovered/Resolved]
  - Pneumonia [Recovered/Resolved]

NARRATIVE: CASE EVENT DATE: 20190116
